FAERS Safety Report 19436598 (Version 1)
Quarter: 2021Q2

REPORT INFORMATION
  Report Type: Other
  Country: AU (occurrence: AU)
  Receive Date: 20210618
  Receipt Date: 20210618
  Transmission Date: 20210717
  Serious: Yes (Hospitalization)
  Sender: FDA-Public Use
  Company Number: AU-ROCHE-2850675

PATIENT
  Age: 61 Year
  Sex: Male

DRUGS (7)
  1. ACTILYSE [Suspect]
     Active Substance: ALTEPLASE
     Indication: CORONARY ARTERY THROMBOSIS
     Dosage: 10MG ALTEPLASE DELIVERED AT THE RCA CRUX USING A 6 FR GUIDELINER OVER 2 MIN;?ROUTE OF ADMIN.:  INTRA
     Route: 022
  2. DEXTROSE. [Concomitant]
     Active Substance: DEXTROSE
     Indication: PRODUCT USED FOR UNKNOWN INDICATION
     Dosage: FORM OF ADMIN.: INFUSION
     Route: 065
  3. INSULIN [Concomitant]
     Active Substance: INSULIN NOS
     Indication: PRODUCT USED FOR UNKNOWN INDICATION
  4. HEPARIN SODIUM. [Concomitant]
     Active Substance: HEPARIN SODIUM
     Indication: PRODUCT USED FOR UNKNOWN INDICATION
     Dosage: 100U/KG HEPARIN WITH FURTHER BOLUS DOSE AFTER?1 HOUR
  5. ABCIXIMAB [Concomitant]
     Active Substance: ABCIXIMAB
     Indication: PRODUCT USED FOR UNKNOWN INDICATION
     Dosage: 0.25 MG/KG BOLUS
  6. ASPIRIN. [Concomitant]
     Active Substance: ASPIRIN
     Indication: PRODUCT USED FOR UNKNOWN INDICATION
  7. PRASUGREL. [Concomitant]
     Active Substance: PRASUGREL
     Indication: PRODUCT USED FOR UNKNOWN INDICATION

REACTIONS (5)
  - Gastrointestinal haemorrhage [Unknown]
  - Cardiogenic shock [Unknown]
  - Cardiac arrest [Recovered/Resolved]
  - Multiple organ dysfunction syndrome [Unknown]
  - Ventricular tachycardia [Unknown]
